FAERS Safety Report 11675762 (Version 1)
Quarter: 2015Q4

REPORT INFORMATION
  Report Type: Spontaneous
  Country: US (occurrence: US)
  Receive Date: 20151027
  Receipt Date: 20151027
  Transmission Date: 20160304
  Serious: Yes (Hospitalization)
  Sender: FDA-Public Use
  Company Number: US-ELI_LILLY_AND_COMPANY-US201004003179

PATIENT
  Age: 89 Year
  Sex: Female

DRUGS (8)
  1. RESTORIL [Concomitant]
     Active Substance: TEMAZEPAM
     Dosage: 15 MG, UNKNOWN
  2. PERSANTINE [Concomitant]
     Active Substance: DIPYRIDAMOLE
  3. SYNTHROID [Concomitant]
     Active Substance: LEVOTHYROXINE SODIUM
  4. FORTEO [Suspect]
     Active Substance: TERIPARATIDE
     Indication: OSTEOPOROSIS
     Dosage: 20 UG, DAILY (1/D)
     Dates: start: 20100303
  5. ASPIRIN. [Concomitant]
     Active Substance: ASPIRIN
  6. EFFEXOR [Concomitant]
     Active Substance: VENLAFAXINE HYDROCHLORIDE
  7. ZOCOR [Concomitant]
     Active Substance: SIMVASTATIN
  8. TOPROL XL [Concomitant]
     Active Substance: METOPROLOL SUCCINATE

REACTIONS (4)
  - Gastrointestinal disorder [Unknown]
  - Medication error [Unknown]
  - Pain [Not Recovered/Not Resolved]
  - Intentional product use issue [Unknown]

NARRATIVE: CASE EVENT DATE: 20100406
